FAERS Safety Report 5979518-6 (Version None)
Quarter: 2008Q4

REPORT INFORMATION
  Report Type: 
  Country: None (occurrence: None)
  Receive Date: 20081204
  Receipt Date: 20081125
  Transmission Date: 20090506
  Serious: No
  Sender: FDA-Public Use
  Company Number: US-B.I. PHARMACEUTICALS,INC./RIDGEFIELD-2008-BP-14637BP

PATIENT
  Sex: Female

DRUGS (4)
  1. SPIRIVA [Suspect]
     Indication: CHRONIC OBSTRUCTIVE PULMONARY DISEASE
     Dosage: 18MCG
     Route: 055
     Dates: start: 20071001, end: 20080808
  2. FOSAMAX [Concomitant]
     Indication: OSTEOARTHRITIS
  3. PREMARIN [Concomitant]
  4. VITAMINS [Concomitant]

REACTIONS (2)
  - CYSTITIS [None]
  - DYSURIA [None]
